FAERS Safety Report 18496594 (Version 2)
Quarter: 2020Q4

REPORT INFORMATION
  Report Type: Spontaneous
  Country: TH (occurrence: TH)
  Receive Date: 20201112
  Receipt Date: 20201126
  Transmission Date: 20210114
  Serious: Yes (Other)
  Sender: FDA-Public Use
  Company Number: NVSC2020TH297263

PATIENT
  Age: 50 Year
  Sex: Female

DRUGS (7)
  1. BILASTINE [Concomitant]
     Active Substance: BILASTINE
     Dosage: 20 MG 1 DAY BEFORE DESENSITIZATION AND CONTINUED BID
     Route: 065
     Dates: start: 202006
  2. EXJADE [Suspect]
     Active Substance: DEFERASIROX
     Indication: HAEMOGLOBIN E-THALASSAEMIA DISEASE
     Dosage: 1000 MG, QD (2 TABLETS TWICE)
     Route: 048
     Dates: start: 20060523, end: 20060523
  3. EXJADE [Suspect]
     Active Substance: DEFERASIROX
     Dosage: 611 MG/KG
     Route: 048
     Dates: start: 20200401
  4. BILASTINE [Concomitant]
     Active Substance: BILASTINE
     Indication: PREMEDICATION
     Dosage: 20 MG, BID (BEFORE FIRST GRADED CHALLENGE)
     Route: 065
     Dates: start: 202004
  5. EXJADE [Suspect]
     Active Substance: DEFERASIROX
     Dosage: 1250 MG, QD
     Route: 048
     Dates: start: 20200615
  6. DEFEROXAMINE [Concomitant]
     Active Substance: DEFEROXAMINE MESYLATE
     Indication: HAEMOGLOBIN E-THALASSAEMIA DISEASE
     Dosage: UNK (INJECTION)
     Route: 058
     Dates: start: 2006, end: 2019
  7. DEFEROXAMINE [Concomitant]
     Active Substance: DEFEROXAMINE MESYLATE
     Dosage: 3000 MG, QD (4 TIMES/WEEK)
     Route: 058
     Dates: start: 202006

REACTIONS (8)
  - Rash pruritic [Recovered/Resolved]
  - Rash papular [Recovered/Resolved]
  - Contraindicated product administered [Unknown]
  - Angioedema [Recovered/Resolved]
  - Product use issue [Unknown]
  - Rash pruritic [Recovered/Resolved]
  - Angioedema [Recovered/Resolved]
  - Swelling of eyelid [Unknown]

NARRATIVE: CASE EVENT DATE: 2006
